FAERS Safety Report 14701701 (Version 2)
Quarter: 2018Q2

REPORT INFORMATION
  Report Type: Spontaneous
  Country: US (occurrence: US)
  Receive Date: 20180331
  Receipt Date: 20180403
  Transmission Date: 20180711
  Serious: No
  Sender: FDA-Public Use
  Company Number: US-009507513-1803USA012748

PATIENT
  Sex: Female

DRUGS (4)
  1. FOLLISTIM [Suspect]
     Active Substance: FOLLITROPIN
     Dosage: 300 IU, QD
     Route: 058
     Dates: start: 201801
  2. PREGNYL [Suspect]
     Active Substance: CHORIOGONADOTROPIN ALFA
     Dosage: 10,000 U
     Route: 030
     Dates: start: 201801
  3. ZOLOFT [Concomitant]
     Active Substance: SERTRALINE HYDROCHLORIDE
  4. SYNTHROID [Concomitant]
     Active Substance: LEVOTHYROXINE SODIUM

REACTIONS (3)
  - Breast tenderness [Unknown]
  - Nausea [Unknown]
  - Uterine pain [Unknown]

NARRATIVE: CASE EVENT DATE: 2018
